FAERS Safety Report 14968526 (Version 1)
Quarter: 2018Q2

REPORT INFORMATION
  Report Type: Other
  Country: CA (occurrence: CA)
  Receive Date: 20180604
  Receipt Date: 20180604
  Transmission Date: 20180711
  Serious: Yes (Other)
  Sender: FDA-Public Use
  Company Number: CA-APOTEX-2018AP014844

PATIENT

DRUGS (2)
  1. USTEKINUMAB [Concomitant]
     Active Substance: USTEKINUMAB
     Indication: PSORIASIS
     Dosage: UNK
     Route: 065
  2. MYCO[PHENOLATE [Suspect]
     Active Substance: MYCOPHENOLATE MOFETIL
     Indication: PSORIASIS
     Dosage: UNK
     Route: 065

REACTIONS (2)
  - Nephrotic syndrome [Unknown]
  - Glomerulonephritis membranous [Unknown]
